FAERS Safety Report 9705726 (Version 1)
Quarter: 2013Q4

REPORT INFORMATION
  Report Type: Spontaneous
  Country: US (occurrence: US)
  Receive Date: 20131122
  Receipt Date: 20131122
  Transmission Date: 20140711
  Serious: No
  Sender: FDA-Public Use
  Company Number: US-GILEAD-2008-0017815

PATIENT
  Sex: Female
  Weight: 86.18 kg

DRUGS (15)
  1. LETAIRIS [Suspect]
     Indication: PULMONARY HYPERTENSION
     Route: 048
  2. DARVOCET-N [Concomitant]
  3. ALPRAZOLAM [Concomitant]
  4. LEVOTHYROXINE [Concomitant]
  5. LIPITOR [Concomitant]
  6. NEURONTIN [Concomitant]
  7. CLONAZEPAM [Concomitant]
  8. CITALOPRAM [Concomitant]
  9. CLOBETASOL [Concomitant]
  10. NEXIUM [Concomitant]
  11. LIDODERM [Concomitant]
  12. PLAVIX [Concomitant]
  13. HYDROXYZINE [Concomitant]
  14. CLOMITRAZOLE [Concomitant]
  15. HEMORRHOIDAL [Concomitant]

REACTIONS (1)
  - Headache [None]
